FAERS Safety Report 22389292 (Version 1)
Quarter: 2023Q2

REPORT INFORMATION
  Report Type: Spontaneous
  Country: CN (occurrence: CN)
  Receive Date: 20230531
  Receipt Date: 20230531
  Transmission Date: 20230722
  Serious: Yes (Other)
  Sender: FDA-Public Use
  Company Number: None

PATIENT
  Age: 31 Year
  Sex: Female
  Weight: 84 kg

DRUGS (6)
  1. CYCLOPHOSPHAMIDE [Suspect]
     Active Substance: CYCLOPHOSPHAMIDE
     Indication: Lymphoma
     Dosage: 0.5 G, Q12H DILUTED WITH 250 ML OF 0.9% SODIUM CHLORIDE; INTRA PUMP INJECTION
     Route: 050
     Dates: start: 20230415, end: 20230417
  2. SODIUM CHLORIDE [Suspect]
     Active Substance: SODIUM CHLORIDE
     Indication: Medication dilution
     Dosage: 0.9 %, 250 ML, Q12H USED TO DILUTE 0.5 G CYCLOPHOSPHAMIDE, INTRA PUMP INJECTION
     Route: 050
     Dates: start: 20230415, end: 20230417
  3. SODIUM CHLORIDE [Suspect]
     Active Substance: SODIUM CHLORIDE
     Dosage: 0.9%, 100 ML, QD USED TO DILUTE 60 MG EPIRUBICIN HYDROCHLORIDE, INTRA PUMP INJECTION
     Route: 050
     Dates: start: 20230418, end: 20230418
  4. SODIUM CHLORIDE [Suspect]
     Active Substance: SODIUM CHLORIDE
     Dosage: 0.9%, 60 ML, QW USED TO DILUTE 2 MG VINCRISTINE SULPHATE, INTRA PUMP INJECTION
     Route: 050
     Dates: start: 20230418, end: 20230425
  5. EPIRUBICIN HYDROCHLORIDE [Suspect]
     Active Substance: EPIRUBICIN HYDROCHLORIDE
     Indication: Lymphoma
     Dosage: 60 MG, QD DILUTED WITH 100 ML 0.9% SODIUM CHLORIDE, INTRA PUMP INJECTION
     Route: 050
     Dates: start: 20230418, end: 20230418
  6. VINCRISTINE SULFATE [Suspect]
     Active Substance: VINCRISTINE SULFATE
     Indication: Lymphoma
     Dosage: 2 MG, QW DILUTED WITH 60 ML 0.9% SODIUM CHLORIDE, INTRA PUMP INJECTION
     Route: 050
     Dates: start: 20230418, end: 20230425

REACTIONS (3)
  - Myelosuppression [Recovering/Resolving]
  - White blood cell count decreased [Recovering/Resolving]
  - Granulocytopenia [Recovering/Resolving]

NARRATIVE: CASE EVENT DATE: 20230428
